FAERS Safety Report 24607192 (Version 2)
Quarter: 2024Q4

REPORT INFORMATION
  Report Type: Spontaneous
  Country: US (occurrence: US)
  Receive Date: 20241112
  Receipt Date: 20241220
  Transmission Date: 20250115
  Serious: No
  Sender: MICRO LABS
  Company Number: US-862174955-ML2024-05743

PATIENT
  Age: 66 Year
  Sex: Male
  Weight: 79 kg

DRUGS (2)
  1. KETOROLAC TROMETHAMINE [Suspect]
     Active Substance: KETOROLAC TROMETHAMINE
     Indication: Retinal oedema
     Dosage: ONE DROP IN RIGHT EYE
     Route: 047
     Dates: start: 202410
  2. KETOROLAC TROMETHAMINE [Suspect]
     Active Substance: KETOROLAC TROMETHAMINE
     Indication: Iritis

REACTIONS (4)
  - Visual impairment [Unknown]
  - Eye inflammation [Unknown]
  - Product quality issue [Unknown]
  - Product dose omission issue [Unknown]

NARRATIVE: CASE EVENT DATE: 20241001
